FAERS Safety Report 22872519 (Version 3)
Quarter: 2025Q3

REPORT INFORMATION
  Report Type: Spontaneous
  Country: EU (occurrence: EU)
  Receive Date: 20230828
  Receipt Date: 20250725
  Transmission Date: 20251021
  Serious: Yes (Death, Other)
  Sender: RANBAXY
  Company Number: EU-SUN PHARMACEUTICAL INDUSTRIES LTD-2023RR-405691

PATIENT
  Age: 74 Year
  Sex: Male

DRUGS (12)
  1. SUNITINIB [Suspect]
     Active Substance: SUNITINIB
     Indication: Chromophobe renal cell carcinoma
     Dosage: 1D1
     Route: 065
     Dates: start: 20230121, end: 20230207
  2. SUNITINIB [Suspect]
     Active Substance: SUNITINIB
     Indication: Metastatic renal cell carcinoma
  3. SUNITINIB [Suspect]
     Active Substance: SUNITINIB
     Indication: Metastases to lymph nodes
  4. SUNITINIB [Suspect]
     Active Substance: SUNITINIB
     Indication: Metastases to liver
  5. SUNITINIB [Suspect]
     Active Substance: SUNITINIB
     Indication: Metastases to bone
  6. EVEROLIMUS [Suspect]
     Active Substance: EVEROLIMUS
     Indication: Chromophobe renal cell carcinoma
     Route: 065
  7. EVEROLIMUS [Suspect]
     Active Substance: EVEROLIMUS
     Indication: Metastases to bone
  8. EVEROLIMUS [Suspect]
     Active Substance: EVEROLIMUS
     Indication: Metastases to liver
  9. EVEROLIMUS [Suspect]
     Active Substance: EVEROLIMUS
     Indication: Metastases to lymph nodes
  10. ACETAMINOPHEN [Concomitant]
     Active Substance: ACETAMINOPHEN
     Indication: Renal cell carcinoma
     Route: 065
  11. PANTOPRAZOLE [Concomitant]
     Active Substance: PANTOPRAZOLE
     Indication: Renal cell carcinoma
     Route: 065
  12. PREDNISONE [Concomitant]
     Active Substance: PREDNISONE
     Indication: Renal cell carcinoma
     Dosage: 80 MILLIGRAM, DAILY, 80 MG/DAY
     Route: 065

REACTIONS (9)
  - Drug ineffective for unapproved indication [Fatal]
  - Malignant neoplasm progression [Fatal]
  - Drug ineffective [Fatal]
  - Serous retinal detachment [Recovering/Resolving]
  - Serous retinal detachment [Recovering/Resolving]
  - Subretinal fluid [Recovered/Resolved]
  - Vogt-Koyanagi-Harada disease [Recovered/Resolved]
  - Retinal oedema [Recovered/Resolved]
  - Visual acuity reduced [Recovered/Resolved]
